FAERS Safety Report 10101697 (Version 1)
Quarter: 2014Q2

REPORT INFORMATION
  Report Type: Spontaneous
  Country: FR (occurrence: None)
  Receive Date: 20140418
  Receipt Date: 20140418
  Transmission Date: 20141212
  Serious: Yes (Hospitalization, Disabling)
  Sender: FDA-Public Use
  Company Number: 2013SPTI000470

PATIENT
  Age: 29 Year
  Sex: Female

DRUGS (1)
  1. ADAGEN [Suspect]
     Indication: COMBINED IMMUNODEFICIENCY
     Route: 030
     Dates: start: 20130409

REACTIONS (4)
  - Deep vein thrombosis [None]
  - Erythema nodosum [None]
  - Pyrexia [None]
  - Post thrombotic syndrome [None]
